FAERS Safety Report 9148072 (Version 1)
Quarter: 2013Q1

REPORT INFORMATION
  Report Type: Spontaneous
  Country: NL (occurrence: NL)
  Receive Date: 20130308
  Receipt Date: 20130308
  Transmission Date: 20140127
  Serious: Yes (Other)
  Sender: FDA-Public Use
  Company Number: NL-AMGEN-NLDSP2013015578

PATIENT
  Age: 35 Year
  Sex: Male

DRUGS (1)
  1. ENBREL [Suspect]
     Indication: ANKYLOSING SPONDYLITIS
     Dosage: 25 MG, 2X/WEEK
     Dates: start: 2007

REACTIONS (1)
  - Neoplasm skin [Recovered/Resolved]
